FAERS Safety Report 9805020 (Version 1)
Quarter: 2014Q1

REPORT INFORMATION
  Report Type: Report from Study
  Country: US (occurrence: US)
  Receive Date: 20140109
  Receipt Date: 20140109
  Transmission Date: 20141002
  Serious: Yes (Other)
  Sender: FDA-Public Use
  Company Number: US-ROCHE-1330673

PATIENT
  Age: 34 Year
  Sex: Female
  Weight: 109.87 kg

DRUGS (15)
  1. AVASTIN [Suspect]
     Indication: COLON CANCER
     Route: 042
     Dates: start: 20120507, end: 201208
  2. AVASTIN [Suspect]
     Route: 042
     Dates: start: 201206, end: 201208
  3. AVASTIN [Suspect]
     Route: 042
     Dates: start: 201209, end: 201212
  4. 5-FU [Suspect]
     Indication: COLORECTAL CANCER METASTATIC
     Route: 042
     Dates: start: 20120507
  5. 5-FU [Suspect]
     Route: 042
  6. 5-FU [Suspect]
     Route: 042
  7. 5-FU [Suspect]
     Route: 042
  8. LISINOPRIL [Concomitant]
     Route: 048
     Dates: start: 20120601
  9. ALOXI [Concomitant]
     Route: 042
  10. DEXAMETHASONE [Concomitant]
     Route: 042
  11. OXALIPLATIN [Concomitant]
     Route: 042
  12. FUSILEV [Concomitant]
     Route: 042
  13. CAMPTOSAR [Concomitant]
     Route: 042
  14. EMEND [Concomitant]
     Route: 042
  15. NS 0.9% [Concomitant]
     Route: 065

REACTIONS (14)
  - Renal failure [Unknown]
  - Protein urine present [Unknown]
  - Blood pressure increased [Unknown]
  - Confusional state [Not Recovered/Not Resolved]
  - Dizziness postural [Not Recovered/Not Resolved]
  - Fatigue [Not Recovered/Not Resolved]
  - Back pain [Not Recovered/Not Resolved]
  - Lacrimal disorder [Unknown]
  - Cardiomyopathy [Unknown]
  - Rectal haemorrhage [Recovered/Resolved]
  - Diarrhoea [Recovering/Resolving]
  - Anal fissure [Unknown]
  - Drug effect decreased [Unknown]
  - Arthralgia [Unknown]
